FAERS Safety Report 9562036 (Version 2)
Quarter: 2013Q4

REPORT INFORMATION
  Report Type: Spontaneous
  Country: GB (occurrence: GB)
  Receive Date: 20130927
  Receipt Date: 20131009
  Transmission Date: 20140711
  Serious: Yes (Death)
  Sender: FDA-Public Use
  Company Number: GB-PFIZER INC-2013273674

PATIENT
  Age: 9 Decade
  Sex: Female

DRUGS (1)
  1. ZYVOX [Suspect]
     Indication: ARTHRITIS INFECTIVE
     Dosage: UNK

REACTIONS (2)
  - Death [Fatal]
  - Drug intolerance [Unknown]
